FAERS Safety Report 7986991 (Version 3)
Quarter: 2012Q4

REPORT INFORMATION
  Report Type: 
  Country: US (occurrence: US)
  Receive Date: 20110613
  Receipt Date: 20121120
  Transmission Date: 20130627
  Serious: Yes (Other)
  Sender: FDA-Public Use
  Company Number: US-ELI_LILLY_AND_COMPANY-US201104006754

PATIENT
  Age: 84 Year
  Sex: Female

DRUGS (12)
  1. FORTEO [Suspect]
     Indication: OSTEOPOROSIS
     Dosage: 20 ug, qd
     Route: 065
  2. FORTEO [Suspect]
     Dosage: 20 ug, qd
     Route: 065
  3. FORTEO [Suspect]
     Dosage: 20 ug, qd
  4. FORTEO [Suspect]
     Dosage: 20 ug, qd
  5. FORTEO [Suspect]
     Dosage: 20 ug, qd
  6. POTASSIUM [Concomitant]
  7. CALCIUM +VIT D [Concomitant]
  8. STOOL SOFTENER [Concomitant]
  9. DOXYCYCLINE [Concomitant]
     Dosage: UNK, other
  10. ACIDOPHILUS [Concomitant]
  11. PULMICORT [Concomitant]
  12. ACTONEL [Concomitant]
     Route: 065

REACTIONS (6)
  - Acoustic neuroma [Not Recovered/Not Resolved]
  - Arthritis [Unknown]
  - Alopecia [Unknown]
  - Underdose [Unknown]
  - Fall [Unknown]
  - Drug dose omission [Unknown]
